FAERS Safety Report 10502983 (Version 6)
Quarter: 2015Q1

REPORT INFORMATION
  Report Type: Report from Study
  Country: US (occurrence: US)
  Receive Date: 20141007
  Receipt Date: 20150312
  Transmission Date: 20150720
  Serious: Yes (Hospitalization)
  Sender: FDA-Public Use
  Company Number: US-ACTELION-A-US2014-106015

PATIENT
  Age: 65 Year
  Sex: Female

DRUGS (2)
  1. TRACLEER [Suspect]
     Active Substance: BOSENTAN\BOSENTAN MONOHYDRATE
     Indication: PULMONARY ARTERIAL HYPERTENSION
     Dosage: UNK
     Route: 048
  2. COUMADIN [Concomitant]
     Active Substance: WARFARIN SODIUM

REACTIONS (15)
  - Pericarditis [Unknown]
  - Atrial fibrillation [Unknown]
  - Dyspnoea [Unknown]
  - Decreased activity [Unknown]
  - Cardiac pacemaker insertion [Unknown]
  - Chest discomfort [Unknown]
  - Feeling abnormal [Unknown]
  - Cardiac ablation [Unknown]
  - Cardiac disorder [Unknown]
  - Stent placement [Unknown]
  - Weight decreased [Unknown]
  - Angioplasty [Unknown]
  - Decreased appetite [Unknown]
  - Cardioversion [Unknown]
  - Fatigue [Unknown]
